FAERS Safety Report 21314580 (Version 1)
Quarter: 2022Q3

REPORT INFORMATION
  Report Type: Spontaneous
  Country: US (occurrence: US)
  Receive Date: 20220909
  Receipt Date: 20220909
  Transmission Date: 20221027
  Serious: No
  Sender: FDA-Public Use
  Company Number: US-PFIZER INC-202201142350

PATIENT
  Age: 74 Year
  Sex: Female

DRUGS (1)
  1. IBRANCE [Suspect]
     Active Substance: PALBOCICLIB
     Dosage: DAILY FOR 21 DAYS ON THEN 7 DAYS OFF
     Dates: start: 20220808

REACTIONS (6)
  - White blood cell count decreased [Unknown]
  - Nasal oedema [Unknown]
  - Lip swelling [Unknown]
  - Gingival swelling [Unknown]
  - Tongue ulceration [Unknown]
  - Vision blurred [Unknown]
